FAERS Safety Report 4519827-0 (Version None)
Quarter: 2004Q4

REPORT INFORMATION
  Report Type: 
  Country: None (occurrence: None)
  Receive Date: 20041201
  Receipt Date: 20041201
  Transmission Date: 20050328
  Serious: No
  Sender: FDA-Public Use
  Company Number: None

PATIENT
  Age: 59 Year
  Sex: Male
  Weight: 125.4 kg

DRUGS (20)
  1. WARFARIN SODIUM [Suspect]
     Indication: DEEP VEIN THROMBOSIS
     Dosage: VARIOUS, VARIOUS, ORAL
     Route: 048
  2. SODIUM BICARBONATE [Concomitant]
  3. OXYCODONE AND ACETAMINOPHEN [Concomitant]
  4. LISINOPRIL [Concomitant]
  5. NYSTATIN [Concomitant]
  6. COUMADIN [Concomitant]
  7. HUMULIN R [Concomitant]
  8. INSULIN 70/30 NOVOLIN HUMAN INJ [Concomitant]
  9. FLUTICASONE SOLN [Concomitant]
  10. MULTI-VITAMIN [Concomitant]
  11. LORATADINE [Concomitant]
  12. SENNOSIDES [Concomitant]
  13. INSULIN NPH NOVOLIN HUMAN [Concomitant]
  14. DOCUSATE SOD [Concomitant]
  15. INSULIN 70/30 NOVOLIN HUMAN [Concomitant]
  16. METOPROLOL TARTRATE (IMMEDIATE RELEASE) [Concomitant]
  17. ARTIFICIAL TEARS POLYVINYL ALCOHOL SOLN, OPH [Concomitant]
  18. TEMAZEPAM CAP, ORAL [Concomitant]
  19. SODIUM CHLORIDE [Concomitant]
  20. SIMETHICONE [Concomitant]

REACTIONS (1)
  - DRUG LEVEL ABOVE THERAPEUTIC [None]
